FAERS Safety Report 25875400 (Version 1)
Quarter: 2025Q4

REPORT INFORMATION
  Report Type: Spontaneous
  Country: CN (occurrence: CN)
  Receive Date: 20251003
  Receipt Date: 20251003
  Transmission Date: 20260117
  Serious: Yes (Other)
  Sender: Kenvue
  Company Number: CN-KENVUE-20250914518

PATIENT

DRUGS (1)
  1. TYLENOL [Suspect]
     Active Substance: ACETAMINOPHEN
     Indication: Upper respiratory tract infection
     Dosage: 1 DOSAGE FORM, THRICE A DAY
     Route: 048
     Dates: start: 20250910, end: 20250914

REACTIONS (2)
  - Peripheral swelling [Recovering/Resolving]
  - Erythema [Recovering/Resolving]

NARRATIVE: CASE EVENT DATE: 20250914
